FAERS Safety Report 6473699-6 (Version None)
Quarter: 2009Q4

REPORT INFORMATION
  Report Type: 
  Country: None (occurrence: None)
  Receive Date: 20091204
  Receipt Date: 20091125
  Transmission Date: 20100525
  Serious: No
  Sender: FDA-Public Use
  Company Number: AU-JNJFOC-20091104965

PATIENT
  Sex: Female

DRUGS (9)
  1. DURAGESIC-100 [Suspect]
     Route: 062
  2. DURAGESIC-100 [Suspect]
     Route: 062
  3. DURAGESIC-100 [Suspect]
     Indication: PAIN
     Route: 062
  4. KAPANOL [Concomitant]
     Route: 065
  5. PARIET [Concomitant]
     Indication: GASTRIC DISORDER
     Route: 065
  6. PRODEINE FORTE [Concomitant]
     Indication: PAIN
     Route: 065
  7. MODURETIC 5-50 [Concomitant]
     Route: 065
  8. NORFLEX [Concomitant]
     Dosage: 1/2 TO 1 TABLET
     Route: 065
  9. UNKNOWN MEDICATION [Concomitant]
     Indication: PAIN

REACTIONS (3)
  - BREAKTHROUGH PAIN [None]
  - PRODUCT QUALITY ISSUE [None]
  - WRONG TECHNIQUE IN DRUG USAGE PROCESS [None]
